FAERS Safety Report 7610442-9 (Version None)
Quarter: 2011Q3

REPORT INFORMATION
  Report Type: 
  Country: None (occurrence: None)
  Receive Date: 20110707
  Receipt Date: 20110705
  Transmission Date: 20111222
  Serious: Yes (Other)
  Sender: FDA-Public Use
  Company Number: 1000021207

PATIENT
  Age: 63 Year
  Sex: Female

DRUGS (2)
  1. FLUOXETINE HYDROCHLORIDE [Suspect]
  2. ESCITALOPRAM [Suspect]

REACTIONS (1)
  - PSORIATIC ARTHROPATHY [None]
